FAERS Safety Report 11837375 (Version 1)
Quarter: 2015Q4

REPORT INFORMATION
  Report Type: Spontaneous
  Country: US (occurrence: US)
  Receive Date: 20151215
  Receipt Date: 20151215
  Transmission Date: 20160305
  Serious: No
  Sender: FDA-Public Use
  Company Number: US-IMPAX LABORATORIES, INC-2015-IPXL-01210

PATIENT
  Sex: Female
  Weight: 68.27 kg

DRUGS (7)
  1. TYLENOL [Suspect]
     Active Substance: ACETAMINOPHEN
     Indication: ARTHRALGIA
     Dosage: 600 MG BREAK IN HALF EVERY FOUR HOURS
     Route: 065
  2. ZOLPIDEM [Suspect]
     Active Substance: ZOLPIDEM\ZOLPIDEM TARTRATE
     Indication: PRODUCT USED FOR UNKNOWN INDICATION
     Dosage: 5 MG, PRN
     Route: 065
  3. METAXALONE. [Suspect]
     Active Substance: METAXALONE
     Indication: MUSCLE SPASMS
     Dosage: 800 MG 3-4 TIMES, AS NEEDED
     Route: 065
  4. OMEPRAZOLE DELAYED RELEASE [Suspect]
     Active Substance: OMEPRAZOLE
     Indication: ABDOMINAL DISCOMFORT
     Dosage: UNK
     Route: 065
  5. MELATONIN [Suspect]
     Active Substance: MELATONIN
     Indication: SLEEP DISORDER
     Dosage: 1 MG, DAILY
     Route: 065
  6. METAXALONE. [Suspect]
     Active Substance: METAXALONE
     Dosage: UNK UNK, 3 /DAY
     Route: 065
  7. OMEPRAZOLE DELAYED RELEASE [Suspect]
     Active Substance: OMEPRAZOLE
     Indication: IRRITABLE BOWEL SYNDROME

REACTIONS (10)
  - Asthenia [Not Recovered/Not Resolved]
  - Sleep disorder [Not Recovered/Not Resolved]
  - Muscle spasms [Not Recovered/Not Resolved]
  - Mental impairment [Unknown]
  - Condition aggravated [Not Recovered/Not Resolved]
  - Wheelchair user [Not Recovered/Not Resolved]
  - Irritable bowel syndrome [Not Recovered/Not Resolved]
  - Muscular weakness [Not Recovered/Not Resolved]
  - Somnolence [Unknown]
  - Drug ineffective [Unknown]
